FAERS Safety Report 5333021-5 (Version None)
Quarter: 2007Q2

REPORT INFORMATION
  Report Type: 
  Country: None (occurrence: None)
  Receive Date: 20070306
  Receipt Date: 20060731
  Transmission Date: 20071010
  Serious: Yes (Hospitalization)
  Sender: FDA-Public Use
  Company Number: A03200604846

PATIENT
  Age: 59 Year
  Sex: Female

DRUGS (6)
  1. CLOPIDOGREL                    - TABLET - 75 MG [Suspect]
     Indication: STENT PLACEMENT
     Dosage: 75 MG QD - ORAL
     Route: 048
  2. ATORVASTATIN                - TABLET - 40 MG [Suspect]
     Dosage: 40 MG QD - ORAL
     Route: 048
  3. AMLODIPINE [Concomitant]
  4. ZALEPLON [Concomitant]
  5. ACETYLSALICYLIC ACID SRT [Concomitant]
  6. ATENOLOL [Concomitant]

REACTIONS (7)
  - BLOOD ALKALINE PHOSPHATASE INCREASED [None]
  - BLOOD BILIRUBIN INCREASED [None]
  - EOSINOPHIL COUNT INCREASED [None]
  - HEPATOCELLULAR DAMAGE [None]
  - PRESCRIBED OVERDOSE [None]
  - PYREXIA [None]
  - WHITE BLOOD CELL COUNT INCREASED [None]
